FAERS Safety Report 5128306-1 (Version None)
Quarter: 2006Q4

REPORT INFORMATION
  Report Type: 
  Country: None (occurrence: None)
  Receive Date: 20061011
  Receipt Date: 20060929
  Transmission Date: 20070319
  Serious: Yes (Hospitalization, Other)
  Sender: FDA-Public Use
  Company Number: 2006103437

PATIENT
  Age: 69 Year
  Sex: Male
  Weight: 122 kg

DRUGS (10)
  1. ZYVOX [Suspect]
     Indication: STAPHYLOCOCCAL INFECTION
     Dosage: 600 MG (600 MG, 1 IN 1 D), ORAL
     Route: 048
     Dates: start: 20060718, end: 20060821
  2. HEPA-MERZ       (ORNITHINE ASPARTATE) [Concomitant]
  3. TOREM      (TORASEMIDE) [Concomitant]
  4. ALLOPURINOL [Concomitant]
  5. RAMIPRIL [Concomitant]
  6. FALKAMIN (ISOLEUCINE, LEUCINE, VALINE) [Concomitant]
  7. LACTULOSE [Concomitant]
  8. PANTOPRAZOLE SODIUM [Concomitant]
  9. KALINOR RETARD               (POTASSIUM CHLORIDE) [Concomitant]
  10. PROMETHAZINE HCL [Concomitant]

REACTIONS (7)
  - BONE MARROW TOXICITY [None]
  - GASTRITIS EROSIVE [None]
  - GASTRITIS FUNGAL [None]
  - HEPATIC ENCEPHALOPATHY [None]
  - MELAENA [None]
  - PANCYTOPENIA [None]
  - UPPER GASTROINTESTINAL HAEMORRHAGE [None]
